FAERS Safety Report 7003949-9 (Version None)
Quarter: 2010Q3

REPORT INFORMATION
  Report Type: 
  Country: None (occurrence: None)
  Receive Date: 20100920
  Receipt Date: 20100125
  Transmission Date: 20110219
  Serious: No
  Sender: FDA-Public Use
  Company Number: US-WYE-H13143010

PATIENT
  Sex: Male
  Weight: 90.8 kg

DRUGS (2)
  1. PRISTIQ [Suspect]
     Indication: DEPRESSION
     Route: 048
     Dates: start: 20100122
  2. PRISTIQ [Suspect]
     Indication: ANXIETY

REACTIONS (3)
  - DECREASED APPETITE [None]
  - DIZZINESS [None]
  - EJACULATION DISORDER [None]
